FAERS Safety Report 8402924 (Version 5)
Quarter: 2013Q2

REPORT INFORMATION
  Report Type: Report from Study
  Country: BR (occurrence: BR)
  Receive Date: 20120213
  Receipt Date: 20130506
  Transmission Date: 20140414
  Serious: Yes (Other)
  Sender: FDA-Public Use
  Company Number: BR-ASTRAZENECA-2012SE08287

PATIENT
  Age: 24346 Day
  Sex: Male

DRUGS (11)
  1. ASA [Suspect]
     Route: 048
     Dates: end: 20111214
  2. ASA [Suspect]
     Route: 048
     Dates: start: 20120131, end: 20120503
  3. ASA [Suspect]
     Route: 048
     Dates: start: 20120725
  4. AZD6140 [Suspect]
     Indication: CORONARY ARTERY DISEASE
     Route: 048
     Dates: start: 20111111, end: 20111130
  5. AZD6140 [Suspect]
     Indication: CORONARY ARTERY DISEASE
     Route: 048
     Dates: start: 20120201, end: 20120503
  6. AZD6140 [Suspect]
     Indication: CORONARY ARTERY DISEASE
     Route: 048
     Dates: start: 20120508, end: 20120625
  7. AZD6140 [Suspect]
     Indication: CORONARY ARTERY DISEASE
     Route: 048
     Dates: start: 20120725
  8. ATENOLOL [Concomitant]
     Indication: CORONARY ARTERY DISEASE
     Route: 048
     Dates: start: 20100520
  9. LOSARTAN [Concomitant]
     Indication: HYPERTENSION
     Route: 048
  10. SIMVASTATIN [Concomitant]
     Indication: CORONARY ARTERY DISEASE
     Route: 048
     Dates: start: 20100520
  11. CITALOPRAM [Concomitant]
     Indication: ANXIETY
     Route: 048
     Dates: start: 20110912

REACTIONS (1)
  - Vitreous haemorrhage [Recovered/Resolved]
